FAERS Safety Report 7549486-4 (Version None)
Quarter: 2011Q2

REPORT INFORMATION
  Report Type: 
  Country: None (occurrence: None)
  Receive Date: 20110615
  Receipt Date: 20050209
  Transmission Date: 20111010
  Serious: Yes (Hospitalization, Other)
  Sender: FDA-Public Use
  Company Number: PHFR2004GB04630

PATIENT
  Sex: Female

DRUGS (1)
  1. CLOZAPINE [Suspect]
     Indication: SCHIZOPHRENIA
     Dosage: 75 MG, PER DAY
     Dates: start: 20040216, end: 20041129

REACTIONS (3)
  - GASTROINTESTINAL ULCER [None]
  - RECTAL ULCER [None]
  - IRRITABLE BOWEL SYNDROME [None]
